FAERS Safety Report 8559950 (Version 2)
Quarter: 2012Q4

REPORT INFORMATION
  Report Type: 
  Country: JP (occurrence: JP)
  Receive Date: 20120514
  Receipt Date: 20120904
  Transmission Date: 20130627
  Serious: Yes (Life-Threatening, Hospitalization, Other)
  Sender: FDA-Public Use
  Company Number: JP-PFIZER INC-2012115964

PATIENT
  Age: 53 Year
  Sex: Male

DRUGS (2)
  1. CHAMPIX [Suspect]
     Indication: SMOKING CESSATION THERAPY
     Dosage: 0.5 mg/day
     Route: 048
     Dates: start: 20120509, end: 201205
  2. DIOVAN [Suspect]
     Indication: HYPERTENSION
     Dosage: 80 mg, 1x/day
     Route: 048
     Dates: start: 20120507

REACTIONS (8)
  - Syncope [Recovered/Resolved]
  - Atrioventricular block complete [Recovered/Resolved]
  - Hot flush [Unknown]
  - Dizziness [Unknown]
  - Fall [Unknown]
  - Urinary incontinence [Unknown]
  - Faecal incontinence [Unknown]
  - Contusion [Unknown]
